FAERS Safety Report 4550054-7 (Version None)
Quarter: 2005Q1

REPORT INFORMATION
  Report Type: 
  Country: None (occurrence: None)
  Receive Date: 20050107
  Receipt Date: 20041229
  Transmission Date: 20050727
  Serious: Yes (Death)
  Sender: FDA-Public Use
  Company Number: KII-2004-0014463

PATIENT
  Sex: Female

DRUGS (6)
  1. MORPHINE SULFATE [Suspect]
     Dosage: UNK
     Route: 065
  2. THEOPHYLLINE [Suspect]
     Dosage: UNK
     Route: 065
  3. ANTIEPILEPTICS [Suspect]
     Dosage: UNK
     Route: 065
  4. FIBER [Suspect]
     Dosage: UNK
     Route: 065
  5. HYDROCHLOROTHIAZIDE [Suspect]
     Dosage: UNK
     Route: 065
  6. SERUMLIPIDREDUCING AGENTS [Suspect]
     Dosage: UNK
     Route: 065

REACTIONS (1)
  - DEATH [None]
